FAERS Safety Report 19314219 (Version 1)
Quarter: 2021Q2

REPORT INFORMATION
  Report Type: Spontaneous
  Country: US (occurrence: US)
  Receive Date: 20210527
  Receipt Date: 20210527
  Transmission Date: 20210717
  Serious: Yes (Hospitalization)
  Sender: FDA-Public Use
  Company Number: None

PATIENT
  Sex: Female

DRUGS (16)
  1. APIDRA [Concomitant]
     Active Substance: INSULIN GLULISINE
  2. VITAMIN E [Concomitant]
     Active Substance: .ALPHA.-TOCOPHEROL
  3. IRON [Concomitant]
     Active Substance: IRON
  4. MULTIPLE VITAMIN [Concomitant]
     Active Substance: VITAMINS
  5. SPIRONOLACT [Concomitant]
     Active Substance: SPIRONOLACTONE
  6. BASAGLAR [Concomitant]
     Active Substance: INSULIN GLARGINE
  7. LETAIRIS [Concomitant]
     Active Substance: AMBRISENTAN
  8. OSTEO BI FLEX [Concomitant]
  9. SIDENAFIL [Concomitant]
     Active Substance: SILDENAFIL
  10. TRAMADOL HCL [Concomitant]
     Active Substance: TRAMADOL HYDROCHLORIDE
  11. VITAMIN A [Concomitant]
     Active Substance: VITAMIN A
  12. CELLCEPT [Concomitant]
     Active Substance: MYCOPHENOLATE MOFETIL\MYCOPHENOLATE MOFETIL HYDROCHLORIDE
  13. FLONASE ALLERGY RELIEF [Concomitant]
     Active Substance: FLUTICASONE PROPIONATE
  14. PANTOPRAZOLE, [Concomitant]
  15. VITAMIN C [Concomitant]
     Active Substance: ASCORBIC ACID
  16. AMBRISENTAN [Suspect]
     Active Substance: AMBRISENTAN
     Indication: PULMONARY ARTERIAL HYPERTENSION
     Route: 048
     Dates: start: 20190918

REACTIONS (1)
  - Catheterisation cardiac [None]
